FAERS Safety Report 6408087-1 (Version None)
Quarter: 2009Q4

REPORT INFORMATION
  Report Type: 
  Country: None (occurrence: None)
  Receive Date: 20091016
  Receipt Date: 20091002
  Transmission Date: 20100525
  Serious: Yes (Other)
  Sender: FDA-Public Use
  Company Number: MC200900338

PATIENT
  Age: 45 Year
  Sex: Male

DRUGS (7)
  1. CLEVIPREX [Suspect]
     Indication: BLOOD PRESSURE MANAGEMENT
     Dosage: 2 MG, HR ; TITRATED TO 21 MG/HR ; 21 MG, HR
     Dates: start: 20090820, end: 20090820
  2. CLEVIPREX [Suspect]
     Indication: BLOOD PRESSURE MANAGEMENT
     Dosage: 2 MG, HR ; TITRATED TO 21 MG/HR ; 21 MG, HR
     Dates: start: 20090820, end: 20090821
  3. CLEVIPREX [Suspect]
     Indication: BLOOD PRESSURE MANAGEMENT
     Dosage: 2 MG, HR ; TITRATED TO 21 MG/HR ; 21 MG, HR
     Dates: start: 20090821, end: 20090821
  4. CLEVIPREX [Suspect]
     Indication: BLOOD PRESSURE MANAGEMENT
     Dosage: 2 MG, HR ; TITRATED TO 21 MG/HR ; 21 MG, HR
     Dates: start: 20090821
  5. CARDENE [Suspect]
     Dosage: 5 MG, HR ; 5 0 MG/HR 15 MG, HR
     Dates: start: 20090820, end: 20090820
  6. CARDENE [Suspect]
     Dosage: 5 MG, HR ; 5 0 MG/HR 15 MG, HR
     Dates: start: 20090821, end: 20090821
  7. CARDENE [Suspect]
     Dosage: 5 MG, HR ; 5 0 MG/HR 15 MG, HR
     Dates: start: 20090821

REACTIONS (2)
  - OXYGEN SATURATION DECREASED [None]
  - RESPIRATORY GAS EXCHANGE DISORDER [None]
